FAERS Safety Report 7749246-5 (Version None)
Quarter: 2011Q3

REPORT INFORMATION
  Report Type: 
  Country: None (occurrence: None)
  Receive Date: 20110914
  Receipt Date: 20110908
  Transmission Date: 20111222
  Serious: Yes (Other)
  Sender: FDA-Public Use
  Company Number: US-PFIZER INC-2011211283

PATIENT
  Sex: Female
  Weight: 46.259 kg

DRUGS (2)
  1. DETROL LA [Suspect]
     Indication: POLLAKIURIA
     Dosage: 4 MG, DAILY
     Route: 048
     Dates: start: 20110807, end: 20110830
  2. LEVOXYL [Concomitant]
     Indication: THYROID DISORDER
     Dosage: 50 MG, UNK
     Route: 048

REACTIONS (1)
  - VITREOUS FLOATERS [None]
